FAERS Safety Report 20040231 (Version 2)
Quarter: 2021Q4

REPORT INFORMATION
  Report Type: Spontaneous
  Country: NL (occurrence: NL)
  Receive Date: 20211106
  Receipt Date: 20211115
  Transmission Date: 20220303
  Serious: Yes (Hospitalization)
  Sender: FDA-Public Use
  Company Number: NL-NOVARTISPH-NVSC2021NL253395

PATIENT

DRUGS (2)
  1. ALLOPURINOL [Suspect]
     Active Substance: ALLOPURINOL
     Indication: Inflammatory bowel disease
     Dosage: 100 MG, QD
     Route: 048
  2. AZATHIOPRINE [Suspect]
     Active Substance: AZATHIOPRINE
     Indication: Inflammatory bowel disease
     Dosage: UNK (TARGET DOSE OF 2.5 MG/KG/DAY OR 1.25 MG/KG/ DAY I.E. 25 PERCENT OF THE EQUIVALENT AZAM DOSE)
     Route: 048

REACTIONS (2)
  - Respiratory tract infection [Unknown]
  - Product use in unapproved indication [Unknown]
